FAERS Safety Report 5205647-0 (Version None)
Quarter: 2007Q1

REPORT INFORMATION
  Report Type: 
  Country: None (occurrence: None)
  Receive Date: 20070105
  Receipt Date: 20070105
  Transmission Date: 20070707
  Serious: Yes (Hospitalization)
  Sender: FDA-Public Use
  Company Number: None

PATIENT
  Age: 41 Year
  Sex: Female
  Weight: 64.5 kg

DRUGS (3)
  1. ACETAMINOPHEN [Suspect]
     Indication: SUICIDE ATTEMPT
     Dosage: 6 G PO ONE TIME DOSE
     Route: 048
     Dates: start: 20060615
  2. IBUPROFEN [Concomitant]
  3. CLONAZEPAM [Concomitant]

REACTIONS (5)
  - ALANINE AMINOTRANSFERASE INCREASED [None]
  - ASPARTATE AMINOTRANSFERASE INCREASED [None]
  - ASTHENIA [None]
  - DRUG LEVEL INCREASED [None]
  - INCORRECT DOSE ADMINISTERED [None]
